FAERS Safety Report 5856151-8 (Version None)
Quarter: 2008Q3

REPORT INFORMATION
  Report Type: 
  Country: None (occurrence: None)
  Receive Date: 20080825
  Receipt Date: 20080814
  Transmission Date: 20090109
  Serious: Yes (Hospitalization)
  Sender: FDA-Public Use
  Company Number: US-AMGEN-US299567

PATIENT
  Sex: Female
  Weight: 66.3 kg

DRUGS (9)
  1. ENBREL [Suspect]
     Indication: RHEUMATOID ARTHRITIS
     Route: 065
  2. PREDNISONE TAB [Concomitant]
     Route: 065
  3. DARVOCET-N 100 [Concomitant]
     Route: 065
  4. NEXIUM [Concomitant]
     Route: 065
  5. DETROL [Concomitant]
     Route: 065
  6. LASIX [Concomitant]
     Route: 065
  7. RESTASIS [Concomitant]
     Route: 047
  8. ALPHAGAN [Concomitant]
     Route: 047
  9. ROBAXIN [Concomitant]
     Route: 065

REACTIONS (1)
  - VERTIGO [None]
